FAERS Safety Report 21446884 (Version 5)
Quarter: 2024Q1

REPORT INFORMATION
  Report Type: Spontaneous
  Country: US (occurrence: US)
  Receive Date: 20221012
  Receipt Date: 20240314
  Transmission Date: 20240410
  Serious: Yes (Other)
  Sender: FDA-Public Use
  Company Number: US-PFIZER INC-PV202200080828

PATIENT
  Age: 54 Year
  Sex: Male

DRUGS (1)
  1. INLYTA [Suspect]
     Active Substance: AXITINIB
     Indication: Renal neoplasm
     Dosage: 5 MG, 2X/DAY
     Route: 048
     Dates: end: 20240116

REACTIONS (7)
  - Fall [Unknown]
  - Renal pain [Unknown]
  - Dizziness [Unknown]
  - Fatigue [Unknown]
  - Illness [Unknown]
  - Blood pressure fluctuation [Unknown]
  - Product dose omission issue [Unknown]
